FAERS Safety Report 8250490-1 (Version None)
Quarter: 2012Q2

REPORT INFORMATION
  Report Type: 
  Country: None (occurrence: None)
  Receive Date: 20120402
  Receipt Date: 20120402
  Transmission Date: 20120825
  Serious: Yes (Hospitalization)
  Sender: FDA-Public Use
  Company Number: None

PATIENT
  Age: 19 Year
  Sex: Female

DRUGS (2)
  1. TERBUTALINE [Suspect]
     Indication: DYSPAREUNIA
     Dosage: 0.25 MG
  2. TERBUTALINE [Suspect]
     Indication: UTERINE CONTRACTIONS DURING PREGNANCY
     Dosage: 0.25 MG

REACTIONS (3)
  - MATERNAL EXPOSURE DURING PREGNANCY [None]
  - TACHYCARDIA [None]
  - TREMOR [None]
